FAERS Safety Report 14182528 (Version 2)
Quarter: 2018Q1

REPORT INFORMATION
  Report Type: Spontaneous
  Country: US (occurrence: US)
  Receive Date: 20171113
  Receipt Date: 20180105
  Transmission Date: 20180508
  Serious: No
  Sender: FDA-Public Use
  Company Number: US-PFIZER INC-2017484647

PATIENT
  Age: 71 Year
  Sex: Female

DRUGS (2)
  1. MORPHINE PAIN PUMP [Concomitant]
     Indication: BACK PAIN
     Dosage: UNK
     Dates: start: 201412
  2. GABAPENTIN. [Suspect]
     Active Substance: GABAPENTIN
     Indication: NEUROPATHY PERIPHERAL
     Dosage: 300MG CAPSULE, 1 CAPSULE BY MOUTH THREE TIMES DAILY
     Route: 048

REACTIONS (3)
  - Fluid retention [Not Recovered/Not Resolved]
  - Hypoacusis [Unknown]
  - Drug ineffective for unapproved indication [Not Recovered/Not Resolved]
